FAERS Safety Report 9640596 (Version 1)
Quarter: 2013Q4

REPORT INFORMATION
  Report Type: Report from Study
  Country: US (occurrence: US)
  Receive Date: 20131023
  Receipt Date: 20131023
  Transmission Date: 20140711
  Serious: Yes (Other)
  Sender: FDA-Public Use
  Company Number: US-ABBVIE-13P-163-1061018-00

PATIENT
  Age: 22 Year
  Sex: Female
  Weight: 58.11 kg

DRUGS (4)
  1. LUPRON DEPOT [Suspect]
     Indication: ENDOMETRIOSIS
     Dosage: 6 MONTH SHOT
     Route: 030
     Dates: start: 200401, end: 200407
  2. SEASONIQUE [Concomitant]
     Indication: CONTRACEPTION
     Dosage: 1 PILL DAILY
     Route: 048
  3. FIBROVIN [Concomitant]
     Indication: ENDOMETRIOSIS
     Dosage: 2 PILLS DAILY
     Route: 048
  4. CANASA [Concomitant]
     Indication: COLITIS ULCERATIVE

REACTIONS (4)
  - Endometriosis [Recovering/Resolving]
  - Hot flush [Recovered/Resolved]
  - Mood swings [Recovered/Resolved]
  - Endometriosis [Recovering/Resolving]
